FAERS Safety Report 6957863-5 (Version None)
Quarter: 2010Q3

REPORT INFORMATION
  Report Type: 
  Country: None (occurrence: None)
  Receive Date: 20100831
  Receipt Date: 20100820
  Transmission Date: 20110219
  Serious: Yes (Other)
  Sender: FDA-Public Use
  Company Number: US-BAYER-US-2007-005910

PATIENT
  Age: 41 Year
  Sex: Female
  Weight: 70 kg

DRUGS (17)
  1. BETASERON [Suspect]
     Indication: RELAPSING-REMITTING MULTIPLE SCLEROSIS
     Route: 058
     Dates: start: 19970101
  2. BETASERON [Suspect]
     Dosage: AS USED: 6 MIU
     Route: 058
     Dates: start: 20100521
  3. BETASERON [Suspect]
     Dosage: AS USED: 4 MIU
     Route: 058
     Dates: start: 20070101, end: 20070127
  4. BETASERON [Suspect]
     Dosage: AS USED: 2 MIU
     Route: 058
     Dates: start: 20070112, end: 20070101
  5. BETASERON [Suspect]
     Route: 058
     Dates: end: 20070218
  6. BETASERON [Suspect]
     Route: 058
     Dates: start: 20000102, end: 20000616
  7. COPAXONE [Concomitant]
     Dosage: 20 MG, UNK
  8. PROZAC [Concomitant]
     Dosage: UNIT DOSE: 60 MG
     Route: 048
  9. TOPAMAX [Concomitant]
     Dosage: UNIT DOSE: 200 MG
     Route: 048
  10. LORAZEPAM [Concomitant]
     Dosage: UNIT DOSE: 1 MG
  11. BACLOFEN [Concomitant]
     Dosage: UNIT DOSE: 10 MG
  12. NEXIUM [Concomitant]
     Dosage: UNIT DOSE: 80 MG
     Route: 048
  13. LIDODERM [Concomitant]
     Indication: MUSCLE SPASMS
     Dosage: UNK, ALT EVERY 12H
     Route: 003
  14. DETROL [Concomitant]
     Dosage: UNIT DOSE: 40 MG
  15. METHIMAZOLE [Concomitant]
     Dosage: UNIT DOSE: 10 MG
  16. CALCIUM [Concomitant]
  17. VITAMIN B-12 [Concomitant]

REACTIONS (16)
  - ASTHENIA [None]
  - BLADDER SPASM [None]
  - DYSARTHRIA [None]
  - DYSPHAGIA [None]
  - GASTRIC ULCER [None]
  - HEADACHE [None]
  - INFLUENZA LIKE ILLNESS [None]
  - INJECTION SITE PAIN [None]
  - LOCAL SWELLING [None]
  - LYMPHADENOPATHY [None]
  - MULTIPLE SCLEROSIS RELAPSE [None]
  - MUSCLE SPASMS [None]
  - OROPHARYNGEAL BLISTERING [None]
  - PAIN [None]
  - PYREXIA [None]
  - URTICARIA [None]
